FAERS Safety Report 8905670 (Version 2)
Quarter: 2012Q4

REPORT INFORMATION
  Report Type: 
  Country: US (occurrence: US)
  Receive Date: 20121109
  Receipt Date: 20121113
  Transmission Date: 20130627
  Serious: Yes (Hospitalization)
  Sender: FDA-Public Use
  Company Number: US-B.I. PHARMACEUTICALS,INC./RIDGEFIELD-2012-BP-27407BP

PATIENT
  Age: 66 None
  Sex: Female
  Weight: 64 kg

DRUGS (6)
  1. SPIRIVA [Suspect]
     Indication: CHRONIC OBSTRUCTIVE PULMONARY DISEASE
     Dosage: 18 mcg
     Route: 055
     Dates: start: 201206
  2. ASPIRIN [Concomitant]
     Dosage: 325 mg
     Route: 048
     Dates: start: 2006
  3. MULTIVITAMIN [Concomitant]
     Indication: SUPPLEMENTATION THERAPY
     Dosage: 1 NR
     Route: 048
     Dates: start: 2006
  4. IRON [Concomitant]
     Indication: ANAEMIA
     Route: 048
     Dates: start: 2006
  5. ATENOLOL [Concomitant]
     Dosage: 50 mg
     Route: 048
     Dates: start: 2006
  6. ATENOLOL [Concomitant]
     Dosage: 25 mg
     Route: 048

REACTIONS (5)
  - Chest pain [Recovered/Resolved]
  - Dyspepsia [Recovered/Resolved]
  - Dysphonia [Not Recovered/Not Resolved]
  - Throat irritation [Not Recovered/Not Resolved]
  - Product quality issue [Recovered/Resolved]
